FAERS Safety Report 20469761 (Version 1)
Quarter: 2022Q1

REPORT INFORMATION
  Report Type: Spontaneous
  Country: US (occurrence: None)
  Receive Date: 20220213
  Receipt Date: 20220213
  Transmission Date: 20220423
  Serious: Yes (Other)
  Sender: FDA-Public Use
  Company Number: None

PATIENT
  Age: 33 Year
  Sex: Female
  Weight: 68.4 kg

DRUGS (3)
  1. MUCUS RELIEF CONGESTION AND COUGH MAXIMUM STRENGTH [Suspect]
     Active Substance: DEXTROMETHORPHAN HYDROBROMIDE\GUAIFENESIN\PHENYLEPHRINE HYDROCHLORIDE
     Indication: Nasopharyngitis
     Dosage: OTHER QUANTITY : 20 ML;?FREQUENCY : EVERY 4 HOURS;?
     Route: 048
     Dates: start: 20220211, end: 20220213
  2. ALBUTEROL [Concomitant]
     Active Substance: ALBUTEROL
  3. KAVA EXTRACT [Concomitant]

REACTIONS (4)
  - Anxiety [None]
  - Anxiety [None]
  - Insomnia [None]
  - Panic attack [None]

NARRATIVE: CASE EVENT DATE: 20220213
